FAERS Safety Report 5736268-9 (Version None)
Quarter: 2008Q2

REPORT INFORMATION
  Report Type: 
  Country: None (occurrence: None)
  Receive Date: 20080509
  Receipt Date: 20080509
  Transmission Date: 20081010
  Serious: Yes (Life-Threatening, Disabling, Other)
  Sender: FDA-Public Use
  Company Number: None

PATIENT
  Age: 78 Year
  Sex: Female
  Weight: 52.6173 kg

DRUGS (2)
  1. DIGITEK 125 BERTEK [Suspect]
     Indication: HEART RATE INCREASED
     Dosage: 1  1   PO
     Route: 048
     Dates: start: 20060801, end: 20080301
  2. DIGITEK 125 BERTEK [Suspect]
     Indication: HEART RATE INCREASED
     Dosage: 1  1   PO
     Route: 048
     Dates: start: 20080302, end: 20080506

REACTIONS (10)
  - CARDIAC FAILURE CONGESTIVE [None]
  - CARDIAC VALVE DISEASE [None]
  - DIZZINESS [None]
  - FATIGUE [None]
  - HEART RATE INCREASED [None]
  - MYOCARDIAL INFARCTION [None]
  - NAUSEA [None]
  - PHARMACEUTICAL PRODUCT COMPLAINT [None]
  - VOMITING [None]
  - WEIGHT DECREASED [None]
